FAERS Safety Report 21670690 (Version 1)
Quarter: 2022Q4

REPORT INFORMATION
  Report Type: Spontaneous
  Country: US (occurrence: US)
  Receive Date: 20221202
  Receipt Date: 20221202
  Transmission Date: 20230113
  Serious: Yes (Hospitalization)
  Sender: FDA-Public Use
  Company Number: ENDG22-05363

PATIENT
  Age: 1 Year
  Sex: Female

DRUGS (2)
  1. BOSENTAN [Suspect]
     Active Substance: BOSENTAN
     Indication: Pulmonary arterial hypertension
     Dosage: UNK UNKNOWN (DISSOLVE ONE TABLET IN 10 ML OF WATER AND GIVE 0.9 MLS VIA J-TUBE), BID
     Route: 050
     Dates: start: 202206
  2. BOSENTAN [Suspect]
     Active Substance: BOSENTAN
     Dosage: UNK UNKNOWN (DISSOLVE ONE-HALF TABLET IN 10 MLS OF WATER AND GIVE 1.8 MLS PER G-TUBE), BID
     Dates: start: 202206

REACTIONS (2)
  - Pulmonary arterial hypertension [Recovered/Resolved]
  - Off label use [Not Recovered/Not Resolved]

NARRATIVE: CASE EVENT DATE: 20220601
